FAERS Safety Report 20506772 (Version 1)
Quarter: 2022Q1

REPORT INFORMATION
  Report Type: Report from Study
  Country: EG (occurrence: EG)
  Receive Date: 20220223
  Receipt Date: 20220223
  Transmission Date: 20220423
  Serious: Yes (Other)
  Sender: FDA-Public Use
  Company Number: EG-NOVARTISPH-NVSC2022EG038861

PATIENT
  Age: 71 Year
  Sex: Female

DRUGS (1)
  1. KISQALI [Suspect]
     Active Substance: RIBOCICLIB
     Indication: Breast cancer metastatic
     Dosage: 1 DOSAGE FORM, QD
     Route: 065
     Dates: start: 20210921, end: 202110

REACTIONS (4)
  - Breast cancer metastatic [Recovering/Resolving]
  - Malignant neoplasm progression [Recovering/Resolving]
  - Off label use [Recovered/Resolved]
  - Product availability issue [Not Recovered/Not Resolved]

NARRATIVE: CASE EVENT DATE: 20210921
